FAERS Safety Report 25707707 (Version 3)
Quarter: 2025Q3

REPORT INFORMATION
  Report Type: Spontaneous
  Country: US (occurrence: US)
  Receive Date: 20250820
  Receipt Date: 20250919
  Transmission Date: 20251020
  Serious: No
  Sender: PHOTOCURE
  Company Number: US-PHOTOCURE ASA-PHCUS2025000003

PATIENT
  Age: 80 Year
  Sex: Female

DRUGS (4)
  1. CYSVIEW [Suspect]
     Active Substance: HEXAMINOLEVULINATE HYDROCHLORIDE
     Route: 042
     Dates: start: 20250804, end: 20250804
  2. CYSVIEW [Suspect]
     Active Substance: HEXAMINOLEVULINATE HYDROCHLORIDE
  3. CYSVIEW [Suspect]
     Active Substance: HEXAMINOLEVULINATE HYDROCHLORIDE
  4. ANCEF [Suspect]
     Active Substance: CEFAZOLIN SODIUM
     Route: 042
     Dates: start: 20250804

REACTIONS (2)
  - Anaphylactic reaction [Recovered/Resolved]
  - Anaphylactic shock [Recovered/Resolved]

NARRATIVE: CASE EVENT DATE: 20250804
